FAERS Safety Report 8428805-0 (Version None)
Quarter: 2012Q2

REPORT INFORMATION
  Report Type: 
  Country: None (occurrence: None)
  Receive Date: 20120606
  Receipt Date: 20120525
  Transmission Date: 20120825
  Serious: Yes (Death)
  Sender: FDA-Public Use
  Company Number: DKLU1081349

PATIENT
  Sex: Female
  Weight: 6.3 kg

DRUGS (12)
  1. CIPROFLOXACIN [Concomitant]
  2. FLUCONAZOLE [Concomitant]
  3. ONDANSETRON [Concomitant]
  4. TOTAL PARENTERAL NUTRITION (NUTRITION CARE CARTAQ 10) [Concomitant]
  5. NEOLAB COTRIMOXAZOLE (BACTRIM) [Concomitant]
  6. ENOXAPARIN SODIUM [Concomitant]
  7. FENTANYL [Concomitant]
  8. VINCRISTINE [Concomitant]
  9. COSMEGEN [Suspect]
     Indication: UNDIFFERENTIATED SARCOMA
     Dosage: 0.05 MG/KG, INTRAVENOUS
     Route: 042
     Dates: start: 20120418
  10. CYCLOPHOSPHAMIDE [Concomitant]
  11. GRANULOCYTE-COLONY STIMULATING (GRANULOCYTE COLONY STIMULATING FACTOR) [Concomitant]
  12. MEROPENEM [Concomitant]

REACTIONS (3)
  - LIVER DISORDER [None]
  - ENCEPHALOPATHY [None]
  - VENOOCCLUSIVE LIVER DISEASE [None]
